FAERS Safety Report 20874476 (Version 1)
Quarter: 2022Q2

REPORT INFORMATION
  Report Type: Spontaneous
  Country: US (occurrence: US)
  Receive Date: 20220525
  Receipt Date: 20220525
  Transmission Date: 20220721
  Serious: Yes (Hospitalization)
  Sender: FDA-Public Use
  Company Number: US-INTRA-CELLULAR THERAPIES, INC.-2022ICT00426

PATIENT
  Sex: Female
  Weight: 95.238 kg

DRUGS (13)
  1. CAPLYTA [Suspect]
     Active Substance: LUMATEPERONE
     Indication: Depression
     Dosage: 42 MG, 1X/DAY
     Route: 048
     Dates: start: 2022, end: 2022
  2. CAPLYTA [Suspect]
     Active Substance: LUMATEPERONE
     Indication: Bipolar disorder
  3. ABILIFY [Suspect]
     Active Substance: ARIPIPRAZOLE
     Dosage: ^LESSER DOSE^
  4. ABILIFY [Suspect]
     Active Substance: ARIPIPRAZOLE
     Dosage: POSSIBLY ADDED 1 EXTRA PILL IN THE MORNING`
  5. LEXAPRO [Suspect]
     Active Substance: ESCITALOPRAM OXALATE
     Dosage: UNK
  6. LEXAPRO [Suspect]
     Active Substance: ESCITALOPRAM OXALATE
     Dosage: POSSIBLY ADDED AN EXTRA PILL IN THE MORNING
  7. UNSPECIFIED INGREDIENT [Suspect]
     Active Substance: UNSPECIFIED INGREDIENT
     Dosage: UNK
     Dates: start: 20220428, end: 20220428
  8. ALCOHOL [Suspect]
     Active Substance: ALCOHOL
     Dosage: UNK
     Dates: start: 20220428, end: 20220428
  9. TRILEPTAL [Concomitant]
     Active Substance: OXCARBAZEPINE
     Dosage: UNK
     Dates: end: 2022
  10. TRILEPTAL [Concomitant]
     Active Substance: OXCARBAZEPINE
     Dosage: UNK
     Dates: start: 2022
  11. ARMOUR THYROID [Concomitant]
     Active Substance: THYROID, PORCINE
     Dosage: 1 MG, 1X/DAY, IN THE MORNING
     Dates: end: 2022
  12. ADDERALL [Concomitant]
     Active Substance: AMPHETAMINE ASPARTATE\AMPHETAMINE SULFATE\DEXTROAMPHETAMINE SACCHARATE\DEXTROAMPHETAMINE SULFATE
     Dosage: 10 MG, 1X/DAY, IN THE MORNING
     Dates: end: 2022
  13. CLONAZEPAM [Concomitant]
     Active Substance: CLONAZEPAM
     Dosage: UNK
     Dates: start: 2022, end: 2022

REACTIONS (12)
  - Mental disorder [Unknown]
  - Suicide attempt [Unknown]
  - Paranoia [Not Recovered/Not Resolved]
  - Feeling abnormal [Unknown]
  - Negative thoughts [Not Recovered/Not Resolved]
  - Sleep disorder [Unknown]
  - Drug interaction [Recovered/Resolved]
  - Apathy [Not Recovered/Not Resolved]
  - Laboratory test abnormal [Unknown]
  - Blood cholesterol increased [Unknown]
  - Somnolence [Recovered/Resolved]
  - Unevaluable event [Not Recovered/Not Resolved]

NARRATIVE: CASE EVENT DATE: 20220101
